FAERS Safety Report 9004454 (Version 3)
Quarter: 2013Q3

REPORT INFORMATION
  Report Type: Report from Study
  Country: DK (occurrence: DK)
  Receive Date: 20130108
  Receipt Date: 20130820
  Transmission Date: 20140515
  Serious: Yes (Hospitalization)
  Sender: FDA-Public Use
  Company Number: DK-EISAI INC-E7389-03414-CLI-DK

PATIENT
  Age: 59 Year
  Sex: Female
  Weight: 52 kg

DRUGS (6)
  1. E7389 (BOLD) [Suspect]
     Indication: SARCOMA
     Route: 041
     Dates: start: 20121217
  2. PARACETAMOL [Concomitant]
     Indication: PAIN
     Route: 048
  3. CONTALGIN [Concomitant]
     Indication: PAIN
     Route: 048
  4. GABAPENTIN [Concomitant]
     Indication: PAIN
     Route: 048
  5. MOVICOL [Concomitant]
     Indication: CONSTIPATION
     Route: 048
  6. LACTULOSE [Concomitant]
     Indication: CONSTIPATION
     Route: 048

REACTIONS (1)
  - Lung infection [Recovered/Resolved]
